FAERS Safety Report 7308750-4 (Version None)
Quarter: 2011Q1

REPORT INFORMATION
  Report Type: 
  Country: None (occurrence: None)
  Receive Date: 20110210
  Receipt Date: 20110126
  Transmission Date: 20110831
  Serious: No
  Sender: FDA-Public Use
  Company Number: SPI201100015

PATIENT
  Age: 53 Year
  Sex: Female
  Weight: 52.2 kg

DRUGS (17)
  1. FLAXSEED OIL (LINUM USITATISSIMUM SEED OIL) [Concomitant]
  2. HYOSCYAMINE SULFATE (HYOSCYAMINE SULFATE) [Concomitant]
  3. COQ 10 (UBIDECARENONE) [Concomitant]
  4. MULTIVITAMIN [Concomitant]
  5. MIGRAINE MEDICATION [Concomitant]
  6. ASPIRIN (ACETYLSALICYLIC ACID) [Concomitant]
  7. RAMIPRIL [Concomitant]
  8. AMITIZA [Suspect]
     Indication: IRRITABLE BOWEL SYNDROME
     Dosage: TID, ORAL ; 24 MCG, BID, ORAL
     Route: 048
     Dates: start: 20110106, end: 20110125
  9. AMITIZA [Suspect]
     Indication: IRRITABLE BOWEL SYNDROME
     Dosage: TID, ORAL ; 24 MCG, BID, ORAL
     Route: 048
     Dates: start: 20101201, end: 20110101
  10. CALCIUM WITH VITAMIN D (CALCIUM PHOSPHATE, CALCIUM SODIUM LACTATE, ERG [Concomitant]
  11. HYDROCODONE BITARTRATE [Concomitant]
  12. ACIPHEX [Concomitant]
  13. METOCLOPRAMIDE [Concomitant]
  14. FISH OIL (FISH OIL) [Concomitant]
  15. DICYCLOMINE [Concomitant]
  16. CRESTOR [Concomitant]
  17. NITROGLYCERIN [Concomitant]

REACTIONS (12)
  - PAIN [None]
  - BACK PAIN [None]
  - HYPOAESTHESIA ORAL [None]
  - HEADACHE [None]
  - URTICARIA [None]
  - PRODUCT SUBSTITUTION ISSUE [None]
  - CHILLS [None]
  - CHEST DISCOMFORT [None]
  - NAUSEA [None]
  - DIARRHOEA [None]
  - INFLUENZA LIKE ILLNESS [None]
  - COUGH [None]
